FAERS Safety Report 7883320-8 (Version None)
Quarter: 2011Q4

REPORT INFORMATION
  Report Type: 
  Country: None (occurrence: None)
  Receive Date: 20111102
  Receipt Date: 20111019
  Transmission Date: 20120403
  Serious: Yes (Other)
  Sender: FDA-Public Use
  Company Number: DE-UCBSA-040522

PATIENT
  Sex: Female
  Weight: 114 kg

DRUGS (3)
  1. CIMZIA [Suspect]
     Indication: RHEUMATOID ARTHRITIS
     Route: 058
     Dates: start: 20110618
  2. MELOXICAM [Concomitant]
  3. LEFLUNOMIDE [Concomitant]

REACTIONS (1)
  - PSORIASIS [None]
